FAERS Safety Report 7511061-5 (Version None)
Quarter: 2011Q2

REPORT INFORMATION
  Report Type: 
  Country: None (occurrence: None)
  Receive Date: 20110531
  Receipt Date: 20110516
  Transmission Date: 20111010
  Serious: Yes (Other)
  Sender: FDA-Public Use
  Company Number: CA-JNJFOC-20110507789

PATIENT
  Sex: Female
  Weight: 59 kg

DRUGS (4)
  1. BIRTH CONTROL PILLS [Concomitant]
  2. VITAMIN B-12 [Concomitant]
     Route: 060
  3. REMICADE [Suspect]
     Indication: CROHN'S DISEASE
     Route: 042
     Dates: start: 20060101
  4. ASACOL [Concomitant]

REACTIONS (1)
  - SKIN ULCER [None]
